FAERS Safety Report 15979865 (Version 5)
Quarter: 2020Q4

REPORT INFORMATION
  Report Type: Spontaneous
  Country: DE (occurrence: DE)
  Receive Date: 20190219
  Receipt Date: 20201123
  Transmission Date: 20210113
  Serious: Yes (Other)
  Sender: FDA-Public Use
  Company Number: DE-ACCORD-107881

PATIENT
  Age: 30 Year
  Sex: Female

DRUGS (3)
  1. MYFORTIC [Concomitant]
     Active Substance: MYCOPHENOLATE SODIUM
     Dosage: STRENGTH: 360 MG
  2. EISENCARBOXYMALTOSE [Interacting]
     Active Substance: IRON POLYMALTOSE
     Indication: MENORRHAGIA
     Route: 041
  3. TACROLIMUS. [Suspect]
     Active Substance: TACROLIMUS
     Indication: RENAL TRANSPLANT

REACTIONS (4)
  - Therapeutic product effect decreased [Unknown]
  - Drug interaction [Unknown]
  - Transplant rejection [Unknown]
  - Tubulointerstitial nephritis [Unknown]

NARRATIVE: CASE EVENT DATE: 201805
